FAERS Safety Report 17038961 (Version 2)
Quarter: 2021Q3

REPORT INFORMATION
  Report Type: Spontaneous
  Country: CA (occurrence: CA)
  Receive Date: 20191115
  Receipt Date: 20210901
  Transmission Date: 20211014
  Serious: Yes (Death, Other)
  Sender: FDA-Public Use
  Company Number: CA-ANIPHARMA-2019-CA-001639

PATIENT
  Sex: Female

DRUGS (12)
  1. PAMIDRONATE DISODIUM. [Suspect]
     Active Substance: PAMIDRONATE DISODIUM
     Indication: PRODUCT USED FOR UNKNOWN INDICATION
     Dosage: UNKNOWN, QD; 20MG, UNKNOWN
     Route: 065
  2. NOVO?PRANOL [Suspect]
     Active Substance: PROPRANOLOL HYDROCHLORIDE
     Indication: PRODUCT USED FOR UNKNOWN INDICATION
     Dosage: 20 MG, 2X/DAY
     Route: 065
  3. PANTOPRAZOLE [Suspect]
     Active Substance: PANTOPRAZOLE
     Indication: PRODUCT USED FOR UNKNOWN INDICATION
     Dosage: 40 MG, 1X/DAY
     Route: 065
  4. VITAMIN D [Suspect]
     Active Substance: VITAMIN D NOS
     Indication: PRODUCT USED FOR UNKNOWN INDICATION
     Dosage: UNKNOWN, 1X/DAY; UNKNOWN
     Route: 065
  5. MULTIVITAMIN [Suspect]
     Active Substance: VITAMINS
     Dosage: UNKNOWN, QD
     Route: 065
  6. LYNPARZA [Suspect]
     Active Substance: OLAPARIB
     Route: 048
  7. CALCIUM CARBONATE. [Suspect]
     Active Substance: CALCIUM CARBONATE
     Dosage: UNKNOWN, 1X/DAY
     Route: 065
  8. PANTOPRAZOLE [Suspect]
     Active Substance: PANTOPRAZOLE
     Dosage: 40 MG, 1X/DAY; UNK, EVERY 3 MONTHS;
     Route: 065
  9. PROPRANOLOL HCL TABLET (NON?SPECIFIC) [Suspect]
     Active Substance: PROPRANOLOL HYDROCHLORIDE
     Dosage: 40 MG, 1X/DAY; 20 MILLIGRAM, BID;
     Route: 065
  10. PROPRANOLOL EXTENDED RELEASE CAPSULES (NON?SPECIFIC) [Suspect]
     Active Substance: PROPRANOLOL HYDROCHLORIDE
     Indication: PRODUCT USED FOR UNKNOWN INDICATION
     Dosage: 20MG 2X/DAY; UNK
     Route: 065
  11. TEVA?PROPANOLOL [Suspect]
     Active Substance: PROPRANOLOL HYDROCHLORIDE
     Indication: PRODUCT USED FOR UNKNOWN INDICATION
     Dosage: 20 MG, 2X/DAY
     Route: 065
  12. FASLODEX [Suspect]
     Active Substance: FULVESTRANT
     Indication: PRODUCT USED FOR UNKNOWN INDICATION
     Dosage: UNKNOWN
     Route: 030

REACTIONS (2)
  - Death [Fatal]
  - Malignant neoplasm progression [Not Recovered/Not Resolved]
